FAERS Safety Report 7368456-2 (Version None)
Quarter: 2011Q1

REPORT INFORMATION
  Report Type: 
  Country: None (occurrence: None)
  Receive Date: 20110323
  Receipt Date: 20110318
  Transmission Date: 20110831
  Serious: Yes (Other)
  Sender: FDA-Public Use
  Company Number: JP-PFIZER INC-2011062053

PATIENT
  Age: 60 Year
  Sex: Male

DRUGS (1)
  1. TOLTERODINE TARTRATE [Suspect]
     Dosage: 4 MG, 1X/DAY
     Route: 048
     Dates: start: 20110224

REACTIONS (2)
  - FEELING ABNORMAL [None]
  - AMNESIA [None]
